FAERS Safety Report 4804231-8 (Version None)
Quarter: 2005Q4

REPORT INFORMATION
  Report Type: 
  Country: None (occurrence: None)
  Receive Date: 20051017
  Receipt Date: 20050921
  Transmission Date: 20060501
  Serious: Yes (Death)
  Sender: FDA-Public Use
  Company Number: 2005RR-00864

PATIENT
  Age: 79 Year
  Sex: Male
  Weight: 75 kg

DRUGS (5)
  1. ASPIRIN [Suspect]
     Dosage: 75 MG, ORAL
     Route: 048
  2. GALANTAMINE HYDROBROMI [Suspect]
     Indication: DEMENTIA
     Dosage: 12 MG, BID, ORAL
     Route: 048
  3. SIMVASTATIN TABLET [Concomitant]
  4. LACTULOSE [Concomitant]
  5. MOVICOL [Concomitant]

REACTIONS (2)
  - DRUG INTERACTION [None]
  - GASTROINTESTINAL HAEMORRHAGE [None]
